FAERS Safety Report 16027944 (Version 1)
Quarter: 2019Q1

REPORT INFORMATION
  Report Type: Spontaneous
  Country: US (occurrence: US)
  Receive Date: 20190304
  Receipt Date: 20190304
  Transmission Date: 20190418
  Serious: No
  Sender: FDA-Public Use
  Company Number: US-IMPAX LABORATORIES, LLC-2018-IPXL-01095

PATIENT
  Age: 76 Year
  Sex: Male

DRUGS (2)
  1. RYTARY [Suspect]
     Active Substance: CARBIDOPA\LEVODOPA
     Indication: PARKINSON^S DISEASE
     Dosage: 23.75/95MG, 3 CAPSULES, 3 TIMES PER DAY
     Route: 048
  2. RYTARY [Suspect]
     Active Substance: CARBIDOPA\LEVODOPA
     Dosage: 23.75/95MG, 5 CAPSULES, 3 TIMES PER DAY
     Route: 048

REACTIONS (4)
  - Feeling jittery [Unknown]
  - Dyskinesia [Unknown]
  - Nervousness [Unknown]
  - Drug ineffective [Unknown]
